FAERS Safety Report 17999728 (Version 1)
Quarter: 2020Q3

REPORT INFORMATION
  Report Type: Spontaneous
  Country: ES (occurrence: ES)
  Receive Date: 20200709
  Receipt Date: 20200709
  Transmission Date: 20201103
  Serious: Yes (Other)
  Sender: FDA-Public Use
  Company Number: ES-ACCORD-189422

PATIENT
  Age: 43 Year
  Sex: Female
  Weight: 72.7 kg

DRUGS (3)
  1. SERTRALINE [Suspect]
     Active Substance: SERTRALINE HYDROCHLORIDE
     Indication: ANXIETY
     Dosage: IN THE MORNING
     Dates: start: 2017
  2. FLATORIL [CLEBOPRIDE/DIMETICONE] [Interacting]
     Active Substance: CLEBOPRIDE MALATE\DIMETHICONE
     Indication: GASTROINTESTINAL HYPOMOTILITY
     Dosage: 500 MICROGRAMS / 200 MG HARD CAPSULES, 45 CAPSULES
     Route: 048
     Dates: start: 20200627
  3. LORAZEPAM. [Interacting]
     Active Substance: LORAZEPAM
     Indication: ANXIETY
     Dosage: AT BREAKFAST AND DINNER
     Dates: start: 2017

REACTIONS (3)
  - Dizziness [Recovered/Resolved]
  - Somnolence [Recovered/Resolved]
  - Drug interaction [Unknown]

NARRATIVE: CASE EVENT DATE: 20200627
